FAERS Safety Report 9994685 (Version 2)
Quarter: 2014Q2

REPORT INFORMATION
  Report Type: Report from Study
  Country: AU (occurrence: AU)
  Receive Date: 20140311
  Receipt Date: 20140414
  Transmission Date: 20141212
  Serious: Yes (Death)
  Sender: FDA-Public Use
  Company Number: AU-ROCHE-1362524

PATIENT
  Age: 80 Year
  Sex: 0

DRUGS (2)
  1. RANIBIZUMAB [Suspect]
     Indication: PRODUCT USED FOR UNKNOWN INDICATION
     Route: 050
     Dates: start: 20110623
  2. RANIBIZUMAB [Suspect]
     Dosage: DATE OF LAST DOSE PRIOR TO SAE: 07/MAR/2014
     Route: 050
     Dates: start: 20140207

REACTIONS (1)
  - Death [Fatal]
